FAERS Safety Report 13549949 (Version 1)
Quarter: 2017Q2

REPORT INFORMATION
  Report Type: Spontaneous
  Country: CN (occurrence: CN)
  Receive Date: 20170516
  Receipt Date: 20170516
  Transmission Date: 20170830
  Serious: Yes (Death, Other)
  Sender: FDA-Public Use
  Company Number: CN-CELGENEUS-CHN-20170500366

PATIENT

DRUGS (4)
  1. CARFILZOMIB [Suspect]
     Active Substance: CARFILZOMIB
     Indication: PLASMA CELL MYELOMA
     Route: 065
  2. CARFILZOMIB [Suspect]
     Active Substance: CARFILZOMIB
     Route: 065
  3. REVLIMID [Suspect]
     Active Substance: LENALIDOMIDE
     Indication: PLASMA CELL MYELOMA
     Route: 048
  4. DEXAMETHASONE ORAL [Suspect]
     Active Substance: DEXAMETHASONE
     Indication: PLASMA CELL MYELOMA
     Dosage: 5.7143 MILLIGRAM
     Route: 048

REACTIONS (40)
  - Hypophosphataemia [Unknown]
  - Cardiac disorder [Unknown]
  - Fatigue [Unknown]
  - Haemoglobin decreased [Unknown]
  - Constipation [Unknown]
  - Pain in extremity [Unknown]
  - Gastrointestinal haemorrhage [Unknown]
  - Sinus node dysfunction [Unknown]
  - Diarrhoea [Unknown]
  - Hyperglycaemia [Unknown]
  - Hyponatraemia [Unknown]
  - Tachycardia [Unknown]
  - Coronary artery disease [Unknown]
  - Leukopenia [Unknown]
  - Oedema peripheral [Unknown]
  - Myocardial infarction [Unknown]
  - Back pain [Unknown]
  - Bradycardia [Unknown]
  - Pneumonia [Unknown]
  - Rash [Unknown]
  - Embolism [Unknown]
  - Pyrexia [Unknown]
  - Insomnia [Unknown]
  - Cardiac arrest [Fatal]
  - Upper respiratory tract infection [Unknown]
  - Hypokalaemia [Unknown]
  - Arthralgia [Unknown]
  - Nausea [Unknown]
  - Dyspnoea [Unknown]
  - Neuropathy peripheral [Unknown]
  - Alanine aminotransferase increased [Unknown]
  - Abdominal pain [Unknown]
  - Large intestinal stenosis [Fatal]
  - Plasma cell myeloma [Fatal]
  - Lymphopenia [Unknown]
  - Neutropenia [Unknown]
  - Thrombocytopenia [Unknown]
  - Anaemia [Unknown]
  - Cough [Unknown]
  - Muscle spasms [Unknown]
